FAERS Safety Report 4617438-X (Version None)
Quarter: 2005Q1

REPORT INFORMATION
  Report Type: 
  Country: None (occurrence: None)
  Receive Date: 20050324
  Receipt Date: 20050315
  Transmission Date: 20050727
  Serious: Yes (Other)
  Sender: FDA-Public Use
  Company Number: US-KINGPHARMUSA00001-K200500374

PATIENT
  Age: 61 Year
  Sex: Male

DRUGS (13)
  1. ALTACE [Suspect]
     Indication: PROPHYLAXIS
     Dosage: IRREGULAR USAGE
     Dates: start: 20030101, end: 20030501
  2. ALTACE [Suspect]
     Dosage: REGULAR USAGE
     Dates: start: 20030501
  3. MYCOPHENOLATE MOFETIL [Concomitant]
     Indication: IMMUNOSUPPRESSION
     Dosage: 1,000 MG, UNK
     Dates: start: 20020801, end: 20030501
  4. MYCOPHENOLATE MOFETIL [Concomitant]
     Dosage: 2 G, UNK
     Dates: start: 20030501
  5. METHYLPREDNISOLONE [Concomitant]
     Dosage: 4 MG, UNK
     Route: 042
     Dates: start: 20020801, end: 20030501
  6. METHYLPREDNISOLONE [Concomitant]
     Dosage: 100 MG, UNK
     Route: 042
     Dates: start: 20030501, end: 20030501
  7. METHYLPREDNISOLONE [Concomitant]
     Dosage: 8 MG, UNK
     Dates: start: 20030501
  8. ATENOLOL [Concomitant]
     Dosage: 100 MG, UNK
  9. CALCITRIOL [Concomitant]
     Dosage: 25 MCG, UNK
  10. PANTOPRAZOLE [Concomitant]
     Dosage: 20 MG, UNK
  11. ERYTHROPOIETIN BETA [Concomitant]
     Dosage: 18,000 U, QW
  12. SIROLIMUS [Suspect]
     Indication: IMMUNOSUPPRESSION
     Dosage: 9 MG, QD
     Dates: start: 20020801, end: 20030501
  13. SIROLIMUS [Suspect]
     Dosage: 1 MG TITRATED TO 6 MG, QD
     Dates: start: 20030501

REACTIONS (6)
  - EYELID OEDEMA [None]
  - FACE OEDEMA [None]
  - HYPERSENSITIVITY [None]
  - PARAESTHESIA [None]
  - RESPIRATORY DISTRESS [None]
  - TREATMENT NONCOMPLIANCE [None]
